FAERS Safety Report 13512010 (Version 2)
Quarter: 2017Q2

REPORT INFORMATION
  Report Type: Spontaneous
  Country: US (occurrence: US)
  Receive Date: 20170504
  Receipt Date: 20170529
  Transmission Date: 20170830
  Serious: No
  Sender: FDA-Public Use
  Company Number: US-PFIZER INC-2017192775

PATIENT
  Age: 53 Year
  Sex: Female

DRUGS (2)
  1. IBRANCE [Suspect]
     Active Substance: PALBOCICLIB
     Dosage: 125 MG, UNK
     Dates: start: 20170421
  2. IBRANCE [Suspect]
     Active Substance: PALBOCICLIB
     Dosage: 125 MG, CYCLIC (Q DAY X 21, 7 DAYS OFF)
     Dates: start: 20170420

REACTIONS (5)
  - Alopecia [Unknown]
  - Chills [Unknown]
  - Abdominal discomfort [Unknown]
  - Dysgeusia [Unknown]
  - Fatigue [Unknown]
